FAERS Safety Report 13350965 (Version 5)
Quarter: 2017Q2

REPORT INFORMATION
  Report Type: Spontaneous
  Country: US (occurrence: US)
  Receive Date: 20170320
  Receipt Date: 20170612
  Transmission Date: 20170830
  Serious: Yes (Hospitalization)
  Sender: FDA-Public Use
  Company Number: US-PFIZER INC-2017112104

PATIENT
  Age: 62 Year
  Sex: Female
  Weight: 80.74 kg

DRUGS (13)
  1. LYRICA [Suspect]
     Active Substance: PREGABALIN
     Dosage: 75 MG, 1X/DAY
     Route: 048
  2. PHENERGAN [Concomitant]
     Active Substance: PROMETHAZINE HYDROCHLORIDE
     Indication: NAUSEA
     Dosage: 50 MG, DAILY (25MG TWO DAILY)
  3. AMBIEN [Concomitant]
     Active Substance: ZOLPIDEM TARTRATE
     Indication: SLEEP DISORDER
     Dosage: UNK, 1X/DAY
  4. MELOXICAM. [Concomitant]
     Active Substance: MELOXICAM
     Dosage: UNK
  5. ALPRAZOLAM. [Concomitant]
     Active Substance: ALPRAZOLAM
     Dosage: UNK
  6. LYRICA [Suspect]
     Active Substance: PREGABALIN
     Indication: NEURALGIA
     Dosage: 150 MG, 1X/DAY
     Route: 048
  7. NORCO [Concomitant]
     Active Substance: ACETAMINOPHEN\HYDROCODONE BITARTRATE
     Indication: PAIN
     Dosage: 4 DF, DAILY
     Dates: start: 201609
  8. ATIVAN [Concomitant]
     Active Substance: LORAZEPAM
     Indication: ANXIETY
     Dosage: 1 MG, 1X/DAY
  9. LYRICA [Suspect]
     Active Substance: PREGABALIN
     Indication: FIBROMYALGIA
     Dosage: 150 MG, 2X/DAY
     Route: 048
     Dates: start: 20161003
  10. LYRICA [Suspect]
     Active Substance: PREGABALIN
     Dosage: 150 MG, 2X/DAY
     Route: 048
     Dates: start: 20160930, end: 20170328
  11. TOPAMAX [Concomitant]
     Active Substance: TOPIRAMATE
     Indication: MOOD ALTERED
     Dosage: 100 MG, 1X/DAY
  12. OXYCODONE [Concomitant]
     Active Substance: OXYCODONE
     Dosage: UNK
  13. LYRICA [Suspect]
     Active Substance: PREGABALIN
     Dosage: 75 MG, 2X/DAY
     Route: 048
     Dates: start: 20160930, end: 20170328

REACTIONS (19)
  - Bedridden [Not Recovered/Not Resolved]
  - Feeding disorder [Not Recovered/Not Resolved]
  - Intentional product misuse [Unknown]
  - Rash [Recovering/Resolving]
  - Skin ulcer [Not Recovered/Not Resolved]
  - Eye pruritus [Not Recovered/Not Resolved]
  - Eye swelling [Not Recovered/Not Resolved]
  - Malaise [Not Recovered/Not Resolved]
  - Diarrhoea [Recovering/Resolving]
  - Hair colour changes [Unknown]
  - Swelling [Recovering/Resolving]
  - Weight decreased [Unknown]
  - Eyelid rash [Not Recovered/Not Resolved]
  - Nausea [Recovering/Resolving]
  - Swelling face [Not Recovered/Not Resolved]
  - Emotional disorder [Unknown]
  - Pruritus [Unknown]
  - Drug withdrawal syndrome [Not Recovered/Not Resolved]
  - Erythema of eyelid [Unknown]
